FAERS Safety Report 9970249 (Version 1)
Quarter: 2014Q1

REPORT INFORMATION
  Report Type: Spontaneous
  Country: US (occurrence: US)
  Receive Date: 20140306
  Receipt Date: 20140306
  Transmission Date: 20141002
  Serious: Yes (Other)
  Sender: FDA-Public Use
  Company Number: US-TEVA-466738USA

PATIENT
  Sex: Female

DRUGS (1)
  1. ADENOSINE [Suspect]
     Dosage: 3 MG/ML; 140 MCG/KG/MIN
     Dates: start: 20140127

REACTIONS (1)
  - Coronary artery disease [Unknown]
